FAERS Safety Report 21144262 (Version 1)
Quarter: 2022Q3

REPORT INFORMATION
  Report Type: Spontaneous
  Country: US (occurrence: None)
  Receive Date: 20220728
  Receipt Date: 20220728
  Transmission Date: 20221027
  Serious: Yes (Death)
  Sender: FDA-Public Use
  Company Number: None

PATIENT
  Age: 70 Year
  Sex: Male
  Weight: 93.6 kg

DRUGS (2)
  1. YERVOY [Suspect]
     Active Substance: IPILIMUMAB
     Dosage: OTHER FREQUENCY : EVERY 3 WEEKS;?OTHER ROUTE : IVPB;?
     Route: 050
  2. OPDIVO [Suspect]
     Active Substance: NIVOLUMAB
     Dosage: OTHER FREQUENCY : EVERY 3 WEEKS;?OTHER ROUTE : IVPB;?
     Route: 050

REACTIONS (1)
  - Death [None]
